FAERS Safety Report 4505330-0 (Version None)
Quarter: 2004Q4

REPORT INFORMATION
  Report Type: 
  Country: None (occurrence: None)
  Receive Date: 20041118
  Receipt Date: 20041118
  Transmission Date: 20050328
  Serious: Yes (Hospitalization)
  Sender: FDA-Public Use
  Company Number: None

PATIENT
  Age: 67 Year
  Sex: Male
  Weight: 65.7716 kg

DRUGS (3)
  1. SEROQUEL [Suspect]
     Dosage: 25 MG PO HS
     Route: 048
     Dates: start: 20040401, end: 20041101
  2. HYZAAR [Concomitant]
  3. EKELON [Concomitant]

REACTIONS (4)
  - CONVULSION [None]
  - FALL [None]
  - HEAD INJURY [None]
  - HYPERGLYCAEMIA [None]
